FAERS Safety Report 23480521 (Version 1)
Quarter: 2024Q1

REPORT INFORMATION
  Report Type: Spontaneous
  Country: US (occurrence: US)
  Receive Date: 20240205
  Receipt Date: 20240205
  Transmission Date: 20240410
  Serious: No
  Sender: FDA-Public Use
  Company Number: US-PADAGIS-2024PAD00079

PATIENT

DRUGS (1)
  1. KETOCONAZOLE [Suspect]
     Active Substance: KETOCONAZOLE
     Indication: Dandruff
     Dosage: UNK (1-2 TIMES PER WEEK)
     Route: 061

REACTIONS (3)
  - Hair colour changes [Unknown]
  - Product use issue [Unknown]
  - Drug effective for unapproved indication [Unknown]
